FAERS Safety Report 9982364 (Version 2)
Quarter: 2014Q1

REPORT INFORMATION
  Report Type: Report from Study
  Country: PR (occurrence: PR)
  Receive Date: 20140307
  Receipt Date: 20140307
  Transmission Date: 20141002
  Serious: Yes (Hospitalization)
  Sender: FDA-Public Use
  Company Number: PR-ABBVIE-13P-131-1153612-00

PATIENT
  Sex: Female
  Weight: 34.5 kg

DRUGS (2)
  1. HUMIRA [Suspect]
     Indication: PSORIASIS
     Route: 058
     Dates: start: 2011, end: 201309
  2. HUMIRA [Suspect]
     Route: 058
     Dates: start: 201310

REACTIONS (1)
  - Dengue fever [Recovered/Resolved]
